FAERS Safety Report 5084782-4 (Version None)
Quarter: 2006Q3

REPORT INFORMATION
  Report Type: 
  Country: None (occurrence: None)
  Receive Date: 20060815
  Receipt Date: 20060728
  Transmission Date: 20061208
  Serious: Yes (Hospitalization)
  Sender: FDA-Public Use
  Company Number: JP200607003112

PATIENT
  Age: 86 Year
  Sex: Female

DRUGS (6)
  1. EVISTA [Suspect]
     Indication: OSTEOPOROSIS
     Dosage: 60 MG, DAILY (1/D), ORAL
     Route: 048
     Dates: start: 20051213, end: 20060512
  2. ALFAROL (ALFACALCIDOL) CAPSULE [Concomitant]
  3. BUFFERIN    /JPN/  (ACETYLSALICYCLIC ACID, ALUMINIUM GLYCINATE) TABLET [Concomitant]
  4. ASPARA-CA (ASPARTATE CALCIUM) TABLET [Concomitant]
  5. GLAKAY (MENATETRENONE) CAPSULE [Concomitant]
  6. FELBINAC (FELBINAC) [Concomitant]

REACTIONS (2)
  - PANCREATITIS ACUTE [None]
  - SUBILEUS [None]
